FAERS Safety Report 5820164-2 (Version None)
Quarter: 2008Q3

REPORT INFORMATION
  Report Type: 
  Country: None (occurrence: None)
  Receive Date: 20080724
  Receipt Date: 20080715
  Transmission Date: 20090109
  Serious: Yes (Other)
  Sender: FDA-Public Use
  Company Number: PHBS2006IT07022

PATIENT
  Sex: Male

DRUGS (4)
  1. VOLTAREN [Suspect]
     Indication: ARTHROPATHY
     Dosage: 100 MG, QD
     Route: 054
     Dates: start: 20060410, end: 20060412
  2. UNIPRIL [Concomitant]
     Route: 048
  3. AMARYL [Concomitant]
     Route: 048
  4. GLEEVEC [Concomitant]
     Indication: CHRONIC MYELOID LEUKAEMIA
     Dosage: 400 MG/DAY
     Route: 048

REACTIONS (2)
  - SELF-MEDICATION [None]
  - THROMBOCYTOPENIA [None]
